FAERS Safety Report 9626625 (Version 2)
Quarter: 2013Q4

REPORT INFORMATION
  Report Type: Spontaneous
  Country: US (occurrence: US)
  Receive Date: 20131016
  Receipt Date: 20131204
  Transmission Date: 20140711
  Serious: Yes (Hospitalization)
  Sender: FDA-Public Use
  Company Number: US-PFIZER INC-2013295126

PATIENT
  Age: 54 Year
  Sex: Female

DRUGS (6)
  1. TIKOSYN [Suspect]
     Indication: ATRIAL FIBRILLATION
     Dosage: 250 UG, DAILY
     Route: 048
     Dates: start: 201209
  2. COUMADINE [Concomitant]
     Dosage: UNK
  3. GLUCOPHAGE [Concomitant]
     Dosage: UNK
  4. LISINOPRIL [Concomitant]
     Dosage: UNK
  5. MAGNESIUM [Concomitant]
     Dosage: UNK
  6. METOPROLOL [Concomitant]
     Dosage: UNK

REACTIONS (3)
  - Loss of consciousness [Unknown]
  - Syncope [Recovered/Resolved]
  - Arrhythmia supraventricular [Unknown]
